FAERS Safety Report 7176741-2 (Version None)
Quarter: 2010Q4

REPORT INFORMATION
  Report Type: 
  Country: None (occurrence: None)
  Receive Date: 20101220
  Receipt Date: 20101214
  Transmission Date: 20110411
  Serious: Yes (Death, Life-Threatening, Hospitalization, Disabling, Other)
  Sender: FDA-Public Use
  Company Number: RU-SANOFI-AVENTIS-2010SA068355

PATIENT
  Age: 64 Year
  Sex: Male
  Weight: 72 kg

DRUGS (16)
  1. OXALIPLATIN [Suspect]
     Indication: COLORECTAL CANCER
     Route: 051
     Dates: start: 20100526, end: 20100526
  2. OXALIPLATIN [Suspect]
     Route: 051
     Dates: start: 20100929, end: 20100929
  3. INVESTIGATIONAL DRUG [Suspect]
     Indication: COLORECTAL CANCER
     Route: 048
     Dates: start: 20100526, end: 20101027
  4. 5-FU [Suspect]
     Indication: COLORECTAL CANCER
     Route: 040
     Dates: start: 20100526, end: 20100526
  5. 5-FU [Suspect]
     Dosage: OVER 46-48 HOURS ON DAY 1 OF EVERY 14 DAY CYCLE
     Route: 042
     Dates: start: 20100526, end: 20100526
  6. 5-FU [Suspect]
     Route: 040
     Dates: start: 20101001, end: 20101001
  7. 5-FU [Suspect]
     Dosage: OVER 46-48 HOURS ON DAY 1 OF EVERY 14 DAY CYCLE
     Route: 042
     Dates: start: 20101001, end: 20101001
  8. ADEMETIONINE [Concomitant]
  9. MILGAMMA [Concomitant]
     Route: 048
     Dates: start: 20100923
  10. THIOCTIC ACID [Concomitant]
     Dates: start: 20100923
  11. ESSENTIALE [Concomitant]
     Dosage: 600 UNKNOWN, TWICE DAILY DOSE:600 UNIT(S)
     Dates: start: 20100818, end: 20100923
  12. LACTOBACILLUS BIFIDUS, LYOPHILIZED [Concomitant]
     Dates: start: 20100902, end: 20100905
  13. CLEMASTINE FUMARATE [Concomitant]
     Dates: start: 20101013, end: 20101013
  14. DEXAMETHASONE [Concomitant]
     Dates: start: 20101013, end: 20101013
  15. FENPIVERINIUM/METAMIZOLE SODIUM/PITOFENONE [Concomitant]
     Dates: start: 20101027, end: 20101027
  16. FENPIVERINIUM BROMIDE [Concomitant]
     Dates: start: 20101027, end: 20101027

REACTIONS (3)
  - APNOEA [None]
  - COMA [None]
  - HAEMORRHAGIC STROKE [None]
